FAERS Safety Report 8036849-6 (Version None)
Quarter: 2012Q1

REPORT INFORMATION
  Report Type: 
  Country: None (occurrence: None)
  Receive Date: 20120111
  Receipt Date: 20120106
  Transmission Date: 20120608
  Serious: No
  Sender: FDA-Public Use
  Company Number: US-PFIZER INC-2012004896

PATIENT
  Sex: Female
  Weight: 78.005 kg

DRUGS (9)
  1. ADVAIR DISKUS 100/50 [Concomitant]
     Indication: ASTHMA
     Dosage: 250/50 MG, UNK
  2. DIAZEPAM [Concomitant]
     Dosage: 2 MG, 1X/DAY
  3. THYROID TAB [Concomitant]
     Indication: HYPOTHYROIDISM
     Dosage: 60 MG, UNK
  4. TRAZODONE [Concomitant]
     Dosage: 150 MG, 1X/DAY
  5. VENTOLIN [Concomitant]
     Dosage: UNK
  6. PROGESTERONE [Concomitant]
     Dosage: 10 MG, 14 DAYS IN A MONTH
  7. CYMBALTA [Concomitant]
     Dosage: 120 MG, 1X/DAY
  8. CALAN [Suspect]
     Dosage: 180 MG, 1X/DAY
     Route: 048
     Dates: start: 20100201
  9. CALAN [Suspect]
     Indication: HYPERTENSION
     Dosage: 120 MG, 1X/DAY
     Route: 048
     Dates: start: 20090101, end: 20100201

REACTIONS (2)
  - BLOOD PRESSURE ABNORMAL [None]
  - MIGRAINE [None]
